FAERS Safety Report 10202380 (Version 1)
Quarter: 2014Q2

REPORT INFORMATION
  Report Type: Spontaneous
  Country: GB (occurrence: GB)
  Receive Date: 20140528
  Receipt Date: 20140528
  Transmission Date: 20141212
  Serious: Yes (Death, Hospitalization)
  Sender: FDA-Public Use
  Company Number: GB-GILEAD-2014-0103023

PATIENT
  Sex: Male

DRUGS (3)
  1. SOVALDI [Suspect]
     Indication: HEPATITIS C
     Route: 065
  2. RIBAVIRIN [Concomitant]
     Indication: HEPATITIS C
  3. PEGYLATED INTERFERON ALFA-2A [Concomitant]
     Indication: HEPATITIS C

REACTIONS (1)
  - Liver disorder [Fatal]
